FAERS Safety Report 6408973-2 (Version None)
Quarter: 2009Q4

REPORT INFORMATION
  Report Type: 
  Country: None (occurrence: None)
  Receive Date: 20091019
  Receipt Date: 20091019
  Transmission Date: 20100525
  Serious: Yes (Disabling)
  Sender: FDA-Public Use
  Company Number: None

PATIENT
  Age: 50 Year
  Sex: Female
  Weight: 52.6173 kg

DRUGS (2)
  1. CIPROFLOXACIN [Suspect]
     Indication: ASTHMA
     Dosage: 500MG TWICE DAILY PO 3 DOSES
     Route: 048
     Dates: start: 20090927, end: 20090928
  2. CIPROFLOXACIN [Suspect]
     Indication: INFLUENZA
     Dosage: 500MG TWICE DAILY PO 3 DOSES
     Route: 048
     Dates: start: 20090927, end: 20090928

REACTIONS (13)
  - CHEST DISCOMFORT [None]
  - EYELID OEDEMA [None]
  - LIP SWELLING [None]
  - OEDEMA PERIPHERAL [None]
  - PARAESTHESIA [None]
  - PRURITUS [None]
  - PYREXIA [None]
  - RASH ERYTHEMATOUS [None]
  - RASH MACULO-PAPULAR [None]
  - SKIN EXFOLIATION [None]
  - SWOLLEN TONGUE [None]
  - TENDON PAIN [None]
  - URTICARIA [None]
